FAERS Safety Report 9858758 (Version 1)
Quarter: 2014Q1

REPORT INFORMATION
  Report Type: Spontaneous
  Country: US (occurrence: None)
  Receive Date: 20140130
  Receipt Date: 20140130
  Transmission Date: 20141002
  Serious: No
  Sender: FDA-Public Use
  Company Number: None

PATIENT
  Sex: 0

DRUGS (1)
  1. PROLIA [Suspect]

REACTIONS (3)
  - Multiple sclerosis relapse [None]
  - Drug interaction [None]
  - Monoplegia [None]
